FAERS Safety Report 13835443 (Version 1)
Quarter: 2017Q3

REPORT INFORMATION
  Report Type: Spontaneous
  Country: DE (occurrence: DE)
  Receive Date: 20170804
  Receipt Date: 20170804
  Transmission Date: 20171127
  Serious: Yes (Death, Hospitalization)
  Sender: FDA-Public Use
  Company Number: DE-ASTRAZENECA-2017SE77885

PATIENT
  Age: 73 Year
  Sex: Female

DRUGS (3)
  1. IBRANCE [Concomitant]
     Active Substance: PALBOCICLIB
     Indication: BREAST CANCER METASTATIC
     Dosage: FIRST 2 CYCLES 125 MG
     Route: 065
     Dates: start: 201612, end: 2017
  2. ANASTROZOLE. [Suspect]
     Active Substance: ANASTROZOLE
     Indication: BREAST CANCER METASTATIC
     Route: 048
  3. IBRANCE [Concomitant]
     Active Substance: PALBOCICLIB
     Indication: BREAST CANCER METASTATIC
     Dosage: 100 MG CYCLIC
     Route: 065
     Dates: start: 2017

REACTIONS (5)
  - Multiple organ dysfunction syndrome [Fatal]
  - Leukopenia [Fatal]
  - Condition aggravated [Unknown]
  - Dyspnoea [Unknown]
  - Sepsis [Fatal]

NARRATIVE: CASE EVENT DATE: 2017
